FAERS Safety Report 5105768-7 (Version None)
Quarter: 2006Q3

REPORT INFORMATION
  Report Type: 
  Country: None (occurrence: None)
  Receive Date: 20060915
  Receipt Date: 20060911
  Transmission Date: 20061208
  Serious: Yes (Other)
  Sender: FDA-Public Use
  Company Number: JP-BRISTOL-MYERS SQUIBB COMPANY-13505060

PATIENT
  Age: 33 Year
  Sex: Male

DRUGS (6)
  1. PACLITAXEL [Suspect]
     Indication: TESTICULAR SEMINOMA (PURE)
     Dates: start: 20040801
  2. CARBOPLATIN [Suspect]
     Indication: TESTICULAR SEMINOMA (PURE)
     Dates: start: 20040801
  3. ETOPOSIDE [Suspect]
     Indication: TESTICULAR SEMINOMA (PURE)
     Dates: start: 20040801
  4. IFOSFAMIDE [Suspect]
     Indication: TESTICULAR SEMINOMA (PURE)
     Dates: start: 20040801
  5. NEUPOGEN [Suspect]
  6. PLATELETS [Concomitant]

REACTIONS (3)
  - ACUTE FEBRILE NEUTROPHILIC DERMATOSIS [None]
  - INJECTION SITE PHLEBITIS [None]
  - SEPTIC EMBOLUS [None]
